FAERS Safety Report 7745787-5 (Version None)
Quarter: 2011Q3

REPORT INFORMATION
  Report Type: 
  Country: None (occurrence: None)
  Receive Date: 20110825
  Receipt Date: 20110601
  Transmission Date: 20111222
  Serious: No
  Sender: FDA-Public Use
  Company Number: 329568

PATIENT
  Age: 40 Year
  Sex: Male

DRUGS (2)
  1. VICTOZA [Suspect]
     Indication: OBESITY
     Dosage: SUBCUTANEOUS
     Route: 058
     Dates: start: 20110509, end: 20110512
  2. SIMCOR [Suspect]
     Indication: BLOOD CHOLESTEROL INCREASED
     Dosage: 2500 MG, ORAL
     Route: 048
     Dates: start: 20110101, end: 20110512

REACTIONS (4)
  - FLUSHING [None]
  - HEART RATE INCREASED [None]
  - ERYTHEMA [None]
  - PARAESTHESIA ORAL [None]
